FAERS Safety Report 5021220-1 (Version None)
Quarter: 2006Q2

REPORT INFORMATION
  Report Type: 
  Country: None (occurrence: None)
  Receive Date: 20060608
  Receipt Date: 19981113
  Transmission Date: 20061013
  Serious: Yes (Disabling)
  Sender: FDA-Public Use
  Company Number: FR-ROCHE-109093

PATIENT
  Age: 44 Year
  Sex: Female
  Weight: 69 kg

DRUGS (4)
  1. ROCEPHIN [Suspect]
     Route: 030
     Dates: start: 19980803, end: 19980812
  2. PEFLACINE [Suspect]
     Route: 048
     Dates: start: 19980803, end: 19980812
  3. DI-ANTALVIC [Concomitant]
     Route: 048
     Dates: start: 19980803, end: 19980806
  4. TENORMIN [Concomitant]
     Indication: PALPITATIONS
     Route: 048

REACTIONS (2)
  - MYALGIA [None]
  - TENDONITIS [None]
